FAERS Safety Report 7743464-8 (Version None)
Quarter: 2011Q3

REPORT INFORMATION
  Report Type: 
  Country: None (occurrence: None)
  Receive Date: 20110912
  Receipt Date: 20110905
  Transmission Date: 20111222
  Serious: Yes (Death)
  Sender: FDA-Public Use
  Company Number: JP-SANOFI-AVENTIS-2011SA043528

PATIENT
  Age: 75 Year
  Sex: Male
  Weight: 56.2 kg

DRUGS (4)
  1. TAXOTERE [Suspect]
     Route: 041
     Dates: start: 20110627, end: 20110627
  2. DEXAMETHASONE SODIUM PHOSPHATE [Concomitant]
     Route: 041
     Dates: start: 20110627, end: 20110627
  3. ALOXI [Concomitant]
     Route: 041
     Dates: start: 20110627, end: 20110627
  4. ALL OTHER THERAPEUTIC PRODUCTS [Concomitant]
     Route: 041
     Dates: start: 20110627, end: 20110627

REACTIONS (5)
  - HEPATIC FAILURE [None]
  - PYREXIA [None]
  - HEPATOMEGALY [None]
  - RENAL FAILURE [None]
  - CARDIAC TAMPONADE [None]
